FAERS Safety Report 15260927 (Version 1)
Quarter: 2018Q3

REPORT INFORMATION
  Report Type: Spontaneous
  Country: US (occurrence: US)
  Receive Date: 20180719
  Receipt Date: 20180719
  Transmission Date: 20181010
  Serious: Yes (Hospitalization, Other)
  Sender: FDA-Public Use
  Company Number: None

PATIENT
  Age: 56 Year
  Sex: Female
  Weight: 87.5 kg

DRUGS (8)
  1. SALINE?BICARBONATE MOUTH RINSE [Concomitant]
  2. YESCARTA [Suspect]
     Active Substance: AXICABTAGENE CILOLEUCEL
     Indication: DIFFUSE LARGE B-CELL LYMPHOMA
     Route: 041
     Dates: start: 20180618, end: 20180618
  3. BIOTIN [Concomitant]
     Active Substance: BIOTIN
  4. LIDOCAINE. [Concomitant]
     Active Substance: LIDOCAINE
  5. LORAZEPAM. [Concomitant]
     Active Substance: LORAZEPAM
  6. VALACYCLOVIR [Concomitant]
     Active Substance: VALACYCLOVIR HYDROCHLORIDE
  7. DAPSONE. [Concomitant]
     Active Substance: DAPSONE
  8. DIPHENHYDRAMINE. [Concomitant]
     Active Substance: DIPHENHYDRAMINE

REACTIONS (5)
  - Vertebral osteophyte [None]
  - Confusional state [None]
  - Spinal column stenosis [None]
  - Neurotoxicity [None]
  - Disorientation [None]

NARRATIVE: CASE EVENT DATE: 20180618
